FAERS Safety Report 15834399 (Version 1)
Quarter: 2019Q1

REPORT INFORMATION
  Report Type: Spontaneous
  Country: SE (occurrence: SE)
  Receive Date: 20190116
  Receipt Date: 20190116
  Transmission Date: 20190417
  Serious: Yes (Other)
  Sender: FDA-Public Use
  Company Number: PHHY2019SE008847

PATIENT
  Age: 2 Year
  Sex: Female

DRUGS (1)
  1. AMOXICILLIN SANDOZ [Suspect]
     Active Substance: AMOXICILLIN
     Indication: EAR INFECTION
     Dosage: 7.5 ML, QD
     Route: 065
     Dates: end: 20181213

REACTIONS (3)
  - Oral mucosal blistering [Unknown]
  - Pruritus [Unknown]
  - Skin reaction [Unknown]

NARRATIVE: CASE EVENT DATE: 201812
